FAERS Safety Report 17620941 (Version 3)
Quarter: 2020Q2

REPORT INFORMATION
  Report Type: Spontaneous
  Country: IN (occurrence: TR)
  Receive Date: 20200403
  Receipt Date: 20200512
  Transmission Date: 20200713
  Serious: Yes (Hospitalization, Other)
  Sender: FDA-Public Use
  Company Number: TR-ELI_LILLY_AND_COMPANY-TR202003013940

PATIENT
  Age: 77 Year
  Sex: Male

DRUGS (2)
  1. GEMCITABINE HYDROCHLORIDE. [Suspect]
     Active Substance: GEMCITABINE HYDROCHLORIDE
     Indication: SCHWANNOMA
     Dosage: 1000 MG/M2, CYCLICAL - DAYS 1, 8, 15/Q28
     Route: 042
     Dates: start: 2006
  2. PACLITAXEL. [Suspect]
     Active Substance: PACLITAXEL
     Indication: SCHWANNOMA
     Dosage: 80 MG/M2, CYCLICAL - DAYS 1, 8, 15/Q28
     Route: 042
     Dates: start: 2006

REACTIONS (3)
  - Carbohydrate antigen 15-3 increased [Recovered/Resolved]
  - Hypersensitivity pneumonitis [Recovered/Resolved]
  - Off label use [Unknown]

NARRATIVE: CASE EVENT DATE: 2006
